FAERS Safety Report 22239988 (Version 1)
Quarter: 2023Q2

REPORT INFORMATION
  Report Type: Spontaneous
  Country: JP (occurrence: JP)
  Receive Date: 20230421
  Receipt Date: 20230421
  Transmission Date: 20230722
  Serious: Yes (Other)
  Sender: FDA-Public Use
  Company Number: JP-ELI_LILLY_AND_COMPANY-JP202304008076

PATIENT
  Age: 69 Year
  Sex: Male

DRUGS (1)
  1. NECITUMUMAB [Suspect]
     Active Substance: NECITUMUMAB
     Indication: Lung squamous cell carcinoma stage IV
     Dosage: UNK
     Route: 041

REACTIONS (2)
  - Gastrointestinal ulcer [Unknown]
  - Anaemia [Unknown]
